FAERS Safety Report 4655183-5 (Version None)
Quarter: 2005Q2

REPORT INFORMATION
  Report Type: 
  Country: None (occurrence: None)
  Receive Date: 20050506
  Receipt Date: 20050429
  Transmission Date: 20051028
  Serious: Yes (Other)
  Sender: FDA-Public Use
  Company Number: US-GLAXOSMITHKLINE-A0556473A

PATIENT
  Sex: Female

DRUGS (1)
  1. ADVAIR DISKUS 100/50 [Suspect]
     Indication: ASTHMA
     Route: 055

REACTIONS (4)
  - BLOOD GLUCOSE INCREASED [None]
  - LIVER FUNCTION TEST ABNORMAL [None]
  - PALPITATIONS [None]
  - PRURITUS [None]
